FAERS Safety Report 7591697-6 (Version None)
Quarter: 2011Q3

REPORT INFORMATION
  Report Type: 
  Country: None (occurrence: None)
  Receive Date: 20110706
  Receipt Date: 20110615
  Transmission Date: 20111222
  Serious: Yes (Hospitalization, Other)
  Sender: FDA-Public Use
  Company Number: US-BAYER-2010-002548

PATIENT
  Age: 44 Year
  Sex: Female
  Weight: 72.562 kg

DRUGS (22)
  1. RISPERDAL [Concomitant]
     Indication: PSYCHOTIC DISORDER
     Dosage: 0.5 MG, BID
     Dates: start: 20060414, end: 20060428
  2. RISPERDAL [Concomitant]
     Dosage: 0.5 MG, QID
  3. YASMIN [Suspect]
     Indication: PRODUCT USED FOR UNKNOWN INDICATION
     Dosage: UNK UNK, QD
     Route: 048
     Dates: start: 20060121, end: 20061001
  4. LIPITOR [Concomitant]
     Indication: HYPERLIPIDAEMIA
     Dosage: 10 MG, HS
     Route: 048
     Dates: start: 20060408, end: 20060428
  5. PROVIGIL [Concomitant]
     Dosage: 100 MG, TID
     Dates: start: 20060408, end: 20060428
  6. VALIUM [Concomitant]
     Indication: PRODUCT USED FOR UNKNOWN INDICATION
     Dosage: 10 MG, BID
     Dates: start: 20060408, end: 20060428
  7. IBUPROFEN (ADVIL) [Concomitant]
     Indication: PRODUCT USED FOR UNKNOWN INDICATION
     Dosage: 400 MG, PRN
  8. RANITIDINE [Concomitant]
     Dosage: 150 MG, UNK
     Route: 048
  9. TOPAMAX [Concomitant]
     Indication: MOOD SWINGS
     Dosage: 100 MG, QD
     Dates: start: 20060414, end: 20060428
  10. TRAMADOL HCL [Concomitant]
     Indication: HEADACHE
     Dosage: 50 MG, PRN
     Dates: start: 20060424, end: 20060428
  11. SEROQUEL [Concomitant]
     Dosage: 100 MG, UNK
     Route: 048
  12. ATENOLOL [Concomitant]
     Indication: TREMOR
     Dosage: 25 MG, UNK
     Dates: start: 20060408, end: 20060428
  13. PROVIGIL [Concomitant]
     Dosage: 100 MG, UNK
  14. IBUPROFEN (ADVIL) [Concomitant]
     Dosage: 400 MG, Q4HR
  15. PROVIGIL [Concomitant]
     Indication: PRODUCT USED FOR UNKNOWN INDICATION
     Dosage: 100 MG, BID
     Dates: start: 20060408, end: 20060428
  16. VALIUM [Concomitant]
     Dosage: 10 MG, HS
  17. TYLENOL-500 [Concomitant]
     Indication: PRODUCT USED FOR UNKNOWN INDICATION
     Dosage: UNK UNK, PRN
  18. CYMBALTA [Concomitant]
     Indication: ANTIDEPRESSANT THERAPY
     Dosage: 60 MG, QD
     Dates: start: 20060408, end: 20060428
  19. CYMBALTA [Concomitant]
     Dosage: 90 MG, QD
  20. PROVIGIL [Concomitant]
     Dosage: 200 MG, UNK
  21. TOPAMAX [Concomitant]
     Dosage: 150 MG, HS
  22. ALBUTEROL SULFATE AUTOHALER [Concomitant]
     Indication: PRODUCT USED FOR UNKNOWN INDICATION
     Dosage: 2 PUFF(S), TID
     Route: 055

REACTIONS (3)
  - CHOLECYSTITIS CHRONIC [None]
  - PAIN [None]
  - CHOLELITHIASIS [None]
